FAERS Safety Report 24564358 (Version 1)
Quarter: 2024Q4

REPORT INFORMATION
  Report Type: Spontaneous
  Country: US (occurrence: None)
  Receive Date: 20241029
  Receipt Date: 20241029
  Transmission Date: 20250115
  Serious: Yes (Hospitalization)
  Sender: Public
  Company Number: None

PATIENT
  Age: 50 Year
  Sex: Male
  Weight: 92.99 kg

DRUGS (1)
  1. BIMZELX [Suspect]
     Active Substance: BIMEKIZUMAB-BKZX
     Indication: Psoriasis
     Route: 058
     Dates: start: 202407, end: 20241018

REACTIONS (4)
  - Diarrhoea haemorrhagic [None]
  - Abdominal pain [None]
  - Pyrexia [None]
  - Electrolyte imbalance [None]

NARRATIVE: CASE EVENT DATE: 20241019
